FAERS Safety Report 6385235-3 (Version None)
Quarter: 2009Q4

REPORT INFORMATION
  Report Type: 
  Country: None (occurrence: None)
  Receive Date: 20091002
  Receipt Date: 20090527
  Transmission Date: 20100525
  Serious: No
  Sender: FDA-Public Use
  Company Number: US-ASTRAZENECA-2008UW13919

PATIENT
  Age: 70 Year
  Sex: Female

DRUGS (2)
  1. ARIMIDEX [Suspect]
     Indication: BREAST CANCER
     Dosage: 1 PER DAY
     Route: 048
     Dates: start: 20061201
  2. CALCIUM W/ VITAMIN D [Concomitant]

REACTIONS (5)
  - DYSGEUSIA [None]
  - ERYTHEMA MIGRANS [None]
  - GLOSSODYNIA [None]
  - LOWER RESPIRATORY TRACT INFECTION [None]
  - MEDICATION ERROR [None]
